FAERS Safety Report 19095001 (Version 1)
Quarter: 2021Q2

REPORT INFORMATION
  Report Type: Spontaneous
  Country: ES (occurrence: ES)
  Receive Date: 20210406
  Receipt Date: 20210406
  Transmission Date: 20210717
  Serious: Yes (Life-Threatening, Hospitalization)
  Sender: FDA-Public Use
  Company Number: ES-DENTSPLY-2021SCDP000099

PATIENT
  Age: 62 Year
  Sex: Female

DRUGS (3)
  1. LIDOCAINE HYDROCHLORIDE AND EPINEPHRINE BITARTRATE [Suspect]
     Active Substance: EPINEPHRINE BITARTRATE\LIDOCAINE HYDROCHLORIDE
     Indication: DENTAL LOCAL ANAESTHESIA
     Dosage: UNK SOLUTION FOR INJECTION (0.0125 MG/ML EPINEPHRINE (ADRENALINE), 20 MG/ML LIDOCAINE HYDROCHLORIDE)
     Route: 004
     Dates: start: 20210226, end: 20210226
  2. NOLOTIL [METAMIZOLE MAGNESIUM] [Concomitant]
     Active Substance: METAMIZOLE MAGNESIUM
     Indication: PAIN
     Dosage: UNK 1 DOSE
     Route: 048
     Dates: start: 20210226, end: 20210226
  3. AZITHROMYCIN ANHYDROUS. [Concomitant]
     Active Substance: AZITHROMYCIN ANHYDROUS
     Indication: INFECTION
     Dosage: UNK 1 DOSE DAILY
     Route: 048
     Dates: start: 20210222, end: 20210224

REACTIONS (2)
  - Myocardial infarction [None]
  - Rash [Recovered/Resolved]

NARRATIVE: CASE EVENT DATE: 20210226
